FAERS Safety Report 5877959-9 (Version None)
Quarter: 2008Q3

REPORT INFORMATION
  Report Type: 
  Country: None (occurrence: None)
  Receive Date: 20080911
  Receipt Date: 20080908
  Transmission Date: 20090109
  Serious: Yes (Hospitalization)
  Sender: FDA-Public Use
  Company Number: B0536632A

PATIENT
  Sex: Female
  Weight: 60 kg

DRUGS (1)
  1. AUGMENTIN '125' [Suspect]
     Indication: PYELONEPHRITIS
     Dosage: 1G TWICE PER DAY
     Route: 048
     Dates: start: 20080729, end: 20080809

REACTIONS (4)
  - DRUG EXPOSURE DURING PREGNANCY [None]
  - DRUG INEFFECTIVE [None]
  - PROTEIN URINE PRESENT [None]
  - WHITE BLOOD CELLS URINE POSITIVE [None]
